FAERS Safety Report 23959491 (Version 1)
Quarter: 2024Q2

REPORT INFORMATION
  Report Type: Spontaneous
  Country: CA (occurrence: None)
  Receive Date: 20240611
  Receipt Date: 20240611
  Transmission Date: 20240716
  Serious: Yes (Death, Hospitalization)
  Sender: FDA-Public Use
  Company Number: CA-ROCHE-3498113

PATIENT
  Age: 79 Year
  Sex: Male

DRUGS (1)
  1. PIRFENIDONE [Suspect]
     Active Substance: PIRFENIDONE
     Indication: Pulmonary fibrosis
     Route: 048

REACTIONS (7)
  - Cardiac failure congestive [Fatal]
  - Drug ineffective [Fatal]
  - Interstitial lung disease [Fatal]
  - Lung cancer metastatic [Fatal]
  - Malignant pleural effusion [Fatal]
  - Metastases to spine [Fatal]
  - Pathological fracture [Fatal]
